FAERS Safety Report 8588276-0 (Version None)
Quarter: 2012Q3

REPORT INFORMATION
  Report Type: 
  Country: None (occurrence: None)
  Receive Date: 20120813
  Receipt Date: 20120808
  Transmission Date: 20120928
  Serious: Yes (Life-Threatening, Hospitalization)
  Sender: FDA-Public Use
  Company Number: CA-GE HEALTHCARE MEDICAL DIAGNOSTICS-VISP-PR-1208S-0332

PATIENT
  Age: 72 Year
  Sex: Female

DRUGS (2)
  1. VISIPAQUE [Suspect]
     Indication: LIVER DISORDER
     Route: 042
     Dates: start: 20120730, end: 20120730
  2. VISIPAQUE [Suspect]
     Indication: DIAGNOSTIC PROCEDURE

REACTIONS (6)
  - ANAPHYLACTIC REACTION [None]
  - CHEST PAIN [None]
  - BURNING SENSATION [None]
  - SWOLLEN TONGUE [None]
  - NAUSEA [None]
  - VOMITING [None]
